FAERS Safety Report 8415646-3 (Version None)
Quarter: 2012Q2

REPORT INFORMATION
  Report Type: 
  Country: None (occurrence: None)
  Receive Date: 20120606
  Receipt Date: 20120525
  Transmission Date: 20120825
  Serious: Yes (Death)
  Sender: FDA-Public Use
  Company Number: GR-BRISTOL-MYERS SQUIBB COMPANY-16633968

PATIENT

DRUGS (2)
  1. BEVACIZUMAB [Suspect]
     Indication: BREAST CANCER
     Dosage: MAINTANENCE: 15MG/KG EVERY 3 WEEKS
  2. PACLITAXEL [Suspect]
     Indication: BREAST CANCER

REACTIONS (1)
  - CEREBROVASCULAR ACCIDENT [None]
